FAERS Safety Report 21281423 (Version 1)
Quarter: 2022Q3

REPORT INFORMATION
  Report Type: Spontaneous
  Country: US (occurrence: US)
  Receive Date: 20220901
  Receipt Date: 20220901
  Transmission Date: 20221026
  Serious: No
  Sender: FDA-Public Use
  Company Number: US-ALLERGAN-2220630US

PATIENT
  Sex: Female
  Weight: 135.17 kg

DRUGS (1)
  1. ASENAPINE MALEATE [Suspect]
     Active Substance: ASENAPINE MALEATE
     Indication: Product used for unknown indication
     Dosage: 2.5 MG, QD

REACTIONS (4)
  - Balance disorder [Unknown]
  - Hypoaesthesia oral [Unknown]
  - Tongue discomfort [Unknown]
  - Inappropriate schedule of product administration [Unknown]
